FAERS Safety Report 8166564-X (Version None)
Quarter: 2012Q1

REPORT INFORMATION
  Report Type: 
  Country: None (occurrence: None)
  Receive Date: 20120227
  Receipt Date: 20111219
  Transmission Date: 20120608
  Serious: No
  Sender: FDA-Public Use
  Company Number: US-BRISTOL-MYERS SQUIBB COMPANY-16155525

PATIENT
  Sex: Female

DRUGS (1)
  1. TAXOL [Suspect]
     Indication: BREAST CANCER
     Route: 042
     Dates: end: 20110501

REACTIONS (2)
  - PAIN [None]
  - NEUROPATHY PERIPHERAL [None]
